FAERS Safety Report 21411952 (Version 1)
Quarter: 2022Q4

REPORT INFORMATION
  Report Type: Spontaneous
  Country: US (occurrence: None)
  Receive Date: 20221005
  Receipt Date: 20221005
  Transmission Date: 20230113
  Serious: Yes (unspecified)
  Sender: FDA-Public Use
  Company Number: None

PATIENT
  Age: 31 Year
  Sex: Female
  Weight: 94.6 kg

DRUGS (6)
  1. RITUXAN [Suspect]
     Active Substance: RITUXIMAB
     Indication: Systemic scleroderma
     Dosage: OTHER FREQUENCY : EVERY 6 MONTHS;?
     Route: 042
     Dates: start: 20220930
  2. DIPHENHYDRAMINE [Concomitant]
     Active Substance: DIPHENHYDRAMINE
     Dates: start: 20220930
  3. FAMOTIDINE [Concomitant]
     Active Substance: FAMOTIDINE
     Dates: start: 20220930
  4. MONTELUKAST [Concomitant]
     Active Substance: MONTELUKAST SODIUM
     Dates: start: 20220930
  5. METHYLPREDNISOLONE [Concomitant]
     Active Substance: METHYLPREDNISOLONE
     Dates: start: 20220930
  6. ACETAMINOPHEN [Concomitant]
     Active Substance: ACETAMINOPHEN
     Dates: start: 20220930

REACTIONS (2)
  - Pruritus [None]
  - Infusion related reaction [None]

NARRATIVE: CASE EVENT DATE: 20220930
